FAERS Safety Report 19440897 (Version 2)
Quarter: 2021Q2

REPORT INFORMATION
  Report Type: Spontaneous
  Country: GB (occurrence: GB)
  Receive Date: 20210621
  Receipt Date: 20210629
  Transmission Date: 20210717
  Serious: No
  Sender: FDA-Public Use
  Company Number: GB-ADVANZ PHARMA-202106004273

PATIENT

DRUGS (1)
  1. ALFUZOSIN [Suspect]
     Active Substance: ALFUZOSIN
     Dosage: 10 MG, FILM?COATED TABLET (XATRAL)
     Route: 065

REACTIONS (1)
  - COVID-19 [Unknown]
